FAERS Safety Report 11952431 (Version 1)
Quarter: 2016Q1

REPORT INFORMATION
  Report Type: Spontaneous
  Country: CN (occurrence: CN)
  Receive Date: 20160125
  Receipt Date: 20160125
  Transmission Date: 20160526
  Serious: Yes (Other)
  Sender: FDA-Public Use
  Company Number: CN-PFIZER INC-2016037481

PATIENT
  Age: 41 Year
  Sex: Male
  Weight: 72 kg

DRUGS (2)
  1. LIPITOR [Suspect]
     Active Substance: ATORVASTATIN CALCIUM
     Indication: HYPERCHOLESTEROLAEMIA
     Dosage: 20 MG, 1X/DAY
     Route: 048
     Dates: start: 20150827, end: 20150831
  2. BAYASPIRIN [Suspect]
     Active Substance: ASPIRIN
     Indication: CEREBROVASCULAR ACCIDENT
     Dosage: 100 MG, 1X/DAY
     Route: 048
     Dates: start: 20150827, end: 20150831

REACTIONS (4)
  - Jaundice acholuric [Recovered/Resolved]
  - Blood bilirubin abnormal [Recovered/Resolved]
  - Vision blurred [Recovered/Resolved]
  - Xanthochromia [Recovered/Resolved]

NARRATIVE: CASE EVENT DATE: 20150829
